FAERS Safety Report 7725765 (Version 2)
Quarter: 2015Q1

REPORT INFORMATION
  Report Type: Spontaneous
  Country: US (occurrence: US)
  Receive Date: 20101221
  Receipt Date: 20150223
  Transmission Date: 20150721
  Serious: No
  Sender: FDA-Public Use
  Company Number: US-AMGEN-KDL408283

PATIENT
  Age: 49 Year
  Sex: Female
  Weight: 45.35 kg

DRUGS (2)
  1. FISH OIL [Concomitant]
     Active Substance: FISH OIL
     Dosage: UNK
  2. ENBREL [Suspect]
     Active Substance: ETANERCEPT
     Indication: RHEUMATOID ARTHRITIS
     Dosage: 50 MG, QWK
     Route: 058
     Dates: start: 200904, end: 20140105

REACTIONS (6)
  - Rash macular [Unknown]
  - Injection site rash [Unknown]
  - Rash [Unknown]
  - Injection site discolouration [Unknown]
  - Injection site erythema [Unknown]
  - Fungal infection [Unknown]

NARRATIVE: CASE EVENT DATE: 20091130
